FAERS Safety Report 10024267 (Version 3)
Quarter: 2015Q4

REPORT INFORMATION
  Report Type: Spontaneous
  Country: US (occurrence: US)
  Receive Date: 20140320
  Receipt Date: 20151019
  Transmission Date: 20160304
  Serious: Yes (Hospitalization, Disabling)
  Sender: FDA-Public Use
  Company Number: US-PFIZER INC-2014079348

PATIENT
  Age: 57 Year
  Sex: Female

DRUGS (3)
  1. LYRICA [Suspect]
     Active Substance: PREGABALIN
     Indication: NEUROPATHY PERIPHERAL
     Dosage: UNK
     Dates: start: 2006
  2. LYRICA [Suspect]
     Active Substance: PREGABALIN
     Dosage: UNK
  3. LYRICA [Suspect]
     Active Substance: PREGABALIN
     Dosage: 150 MG, TWO CAPSULES A DAY

REACTIONS (7)
  - Osteomyelitis [Unknown]
  - Drug dispensing error [Unknown]
  - Abscess limb [Unknown]
  - Bone disorder [Unknown]
  - Pain [Unknown]
  - Condition aggravated [Unknown]
  - Neuropathy peripheral [Unknown]
